FAERS Safety Report 12248971 (Version 2)
Quarter: 2016Q2

REPORT INFORMATION
  Report Type: Spontaneous
  Country: US (occurrence: US)
  Receive Date: 20160408
  Receipt Date: 20160603
  Transmission Date: 20160815
  Serious: Yes (Death)
  Sender: FDA-Public Use
  Company Number: US-SA-2016SA069754

PATIENT
  Age: 82 Year
  Sex: Female

DRUGS (5)
  1. ICY HOT MEDICATED NO MESS APPLICATOR [Suspect]
     Active Substance: MENTHOL
     Indication: RHEUMATOID ARTHRITIS
     Dosage: ROLL ON USED AT VARIOUS IME ON VARIOUS DAYS
     Route: 065
     Dates: start: 20140110, end: 20160331
  2. ICY HOT MEDICATED NO MESS APPLICATOR [Suspect]
     Active Substance: MENTHOL
     Indication: SPINAL DEFORMITY
     Dosage: ROLL ON USED AT VARIOUS IME ON VARIOUS DAYS
     Route: 065
     Dates: start: 20140110, end: 20160331
  3. ICY HOT MEDICATED NO MESS APPLICATOR [Suspect]
     Active Substance: MENTHOL
     Indication: GOUT
     Dosage: ROLL ON USED AT VARIOUS IME ON VARIOUS DAYS
     Route: 065
     Dates: start: 20140110, end: 20160331
  4. ICY HOT MEDICATED NO MESS APPLICATOR [Suspect]
     Active Substance: MENTHOL
     Indication: JOINT DISLOCATION
     Dosage: ROLL ON USED AT VARIOUS IME ON VARIOUS DAYS
     Route: 065
     Dates: start: 20140110, end: 20160331
  5. ICY HOT MEDICATED NO MESS APPLICATOR [Suspect]
     Active Substance: MENTHOL
     Indication: BONE DISORDER
     Dosage: ROLL ON USED AT VARIOUS IME ON VARIOUS DAYS
     Route: 065
     Dates: start: 20140110, end: 20160331

REACTIONS (1)
  - Death [Fatal]

NARRATIVE: CASE EVENT DATE: 20160401
